FAERS Safety Report 10678244 (Version 2)
Quarter: 2015Q1

REPORT INFORMATION
  Report Type: Report from Study
  Country: US (occurrence: US)
  Receive Date: 20141229
  Receipt Date: 20150119
  Transmission Date: 20150720
  Serious: Yes (Other)
  Sender: FDA-Public Use
  Company Number: PHEH2014US025491

PATIENT
  Sex: Female

DRUGS (2)
  1. SANDOSTATIN LAR DEPOT [Suspect]
     Active Substance: OCTREOTIDE ACETATE
     Indication: HYPOTHYROIDISM
  2. SANDOSTATIN LAR DEPOT [Suspect]
     Active Substance: OCTREOTIDE ACETATE
     Indication: HYPOTHALAMO-PITUITARY DISORDER
     Dosage: 10 MG, UNK
     Route: 065

REACTIONS (2)
  - Brain neoplasm [Unknown]
  - Product use issue [Unknown]
